FAERS Safety Report 7222081-2 (Version None)
Quarter: 2011Q1

REPORT INFORMATION
  Report Type: 
  Country: None (occurrence: None)
  Receive Date: 20110112
  Receipt Date: 20110105
  Transmission Date: 20110831
  Serious: Yes (Hospitalization, Other)
  Sender: FDA-Public Use
  Company Number: JP-JNJFOC-20100707530

PATIENT
  Sex: Male
  Weight: 62 kg

DRUGS (22)
  1. REMICADE [Suspect]
     Route: 042
  2. REMICADE [Suspect]
     Dosage: 6TH INFUSION  DOSE ALSO REPORTED AS 5MG/L
     Route: 042
  3. CALONAL [Concomitant]
     Indication: PROPHYLAXIS
     Route: 048
  4. NEOISCOTIN [Concomitant]
     Indication: ANTIBIOTIC PROPHYLAXIS
     Route: 048
  5. METHOTREXATE [Suspect]
     Indication: RHEUMATOID ARTHRITIS
     Route: 048
  6. ALLEGRA [Concomitant]
     Indication: PROPHYLAXIS
     Route: 048
  7. BAKTAR [Concomitant]
     Indication: PROPHYLAXIS
     Dosage: 2 TABS
     Route: 048
  8. REMICADE [Suspect]
     Indication: RHEUMATOID ARTHRITIS
     Route: 042
  9. REMICADE [Suspect]
     Dosage: DOSE ALSO REPORTED AS 5MG/L
     Route: 042
  10. MUCODYNE [Concomitant]
     Indication: BRONCHITIS CHRONIC
     Route: 048
  11. CELECOX [Concomitant]
     Indication: RHEUMATOID ARTHRITIS
     Route: 048
  12. PARIET [Concomitant]
     Indication: PROPHYLAXIS
     Route: 048
  13. FOLIAMIN [Concomitant]
     Indication: PROPHYLAXIS
     Route: 048
  14. CLARITHROMYCIN [Concomitant]
     Indication: BRONCHITIS CHRONIC
     Route: 048
  15. PREDNISOLONE [Concomitant]
     Route: 048
  16. PYRIDOXAL PHOSPHATE [Concomitant]
     Indication: PROPHYLAXIS
     Route: 048
  17. BONALON [Concomitant]
     Indication: PROPHYLAXIS
     Route: 048
  18. MESADORIN-S [Concomitant]
     Indication: PROPHYLAXIS
     Route: 048
  19. REMICADE [Suspect]
     Dosage: DOSE ALSO REPORTED AS 5MG/L
     Route: 042
  20. REMICADE [Suspect]
     Route: 042
  21. FAMOTIDINE [Concomitant]
     Indication: PROPHYLAXIS
     Route: 048
  22. NEOISCOTIN [Concomitant]
     Route: 048

REACTIONS (1)
  - GASTRIC CANCER [None]
